FAERS Safety Report 4479227-9 (Version None)
Quarter: 2004Q4

REPORT INFORMATION
  Report Type: 
  Country: None (occurrence: None)
  Receive Date: 20041015
  Receipt Date: 20040930
  Transmission Date: 20050328
  Serious: Yes (Hospitalization)
  Sender: FDA-Public Use
  Company Number: 2004JP001799

PATIENT
  Age: 16 Year
  Sex: Female

DRUGS (1)
  1. PROGRAF [Suspect]
     Indication: RENAL TRANSPLANT
     Dosage: ORAL
     Route: 048

REACTIONS (2)
  - COMPLICATIONS OF TRANSPLANTED KIDNEY [None]
  - GLOMERULONEPHRITIS FOCAL [None]
